FAERS Safety Report 24701508 (Version 1)
Quarter: 2024Q4

REPORT INFORMATION
  Report Type: Spontaneous
  Country: US (occurrence: None)
  Receive Date: 20241205
  Receipt Date: 20241205
  Transmission Date: 20250115
  Serious: No
  Sender: Public
  Company Number: None

PATIENT
  Age: 87 Year
  Sex: Female
  Weight: 56.7 kg

DRUGS (11)
  1. SOLIFENACIN [Suspect]
     Active Substance: SOLIFENACIN
     Indication: Urinary incontinence
     Dosage: 1 PILL ONCE DAILY BY MOUTH.???
     Route: 048
     Dates: start: 20240325
  2. LEVOTHYROXINE [Concomitant]
     Active Substance: LEVOTHYROXINE
  3. SOLIPENACINE [Concomitant]
  4. ALENDRONATE [Concomitant]
     Active Substance: ALENDRONATE SODIUM
  5. ELIQUIS [Concomitant]
     Active Substance: APIXABAN
  6. CITRALCAL + D3 [Concomitant]
  7. CALCIUM [Concomitant]
     Active Substance: CALCIUM
  8. VITAMIN D NOS [Concomitant]
     Active Substance: CHOLECALCIFEROL\ERGOCALCIFEROL
  9. FLECAINIDE [Concomitant]
     Active Substance: FLECAINIDE
  10. CLOBETASOL PROPIONATE [Concomitant]
     Active Substance: CLOBETASOL PROPIONATE
  11. DULCOLAX LAXATIVE/STOOL SOFTENER [Concomitant]

REACTIONS (2)
  - Dental caries [None]
  - Dry mouth [None]

NARRATIVE: CASE EVENT DATE: 20240901
